FAERS Safety Report 8620791-3 (Version None)
Quarter: 2012Q3

REPORT INFORMATION
  Report Type: 
  Country: None (occurrence: None)
  Receive Date: 20120824
  Receipt Date: 20120810
  Transmission Date: 20120928
  Serious: Yes (Hospitalization, Other)
  Sender: FDA-Public Use
  Company Number: JP-VERTEX PHARMACEUTICAL INC.-AE-2012-010810

PATIENT
  Age: 54 Year
  Sex: Male

DRUGS (10)
  1. PEG-INTRON [Concomitant]
     Indication: HEPATITIS C
     Route: 058
     Dates: start: 20120210, end: 20120628
  2. URSO 250 [Concomitant]
     Route: 048
     Dates: end: 20120308
  3. TELAVIC [Suspect]
     Indication: HEPATITIS C
     Route: 048
     Dates: start: 20120210, end: 20120307
  4. REBETOL [Concomitant]
     Dosage: 600 MG, UNK
     Route: 048
     Dates: start: 20120221, end: 20120221
  5. REBETOL [Concomitant]
     Dosage: 400 MG, UNK
     Route: 048
     Dates: start: 20120222, end: 20120224
  6. TELAVIC [Suspect]
     Dosage: 1500 MG, UNK
     Route: 048
     Dates: start: 20120308, end: 20120416
  7. REBETOL [Concomitant]
     Dosage: 200 MG, UNK
     Route: 048
     Dates: start: 20120225, end: 20120713
  8. TELAVIC [Suspect]
     Dosage: 1000 MG, UNK
     Route: 048
     Dates: start: 20120417, end: 20120503
  9. REBETOL [Concomitant]
     Indication: HEPATITIS C
     Dosage: 800 MG, UNK
     Route: 048
     Dates: start: 20120210, end: 20120220
  10. ALLOPURINOL [Concomitant]
     Indication: HYPERURICAEMIA
     Route: 048
     Dates: start: 20120308, end: 20120713

REACTIONS (2)
  - DRUG ERUPTION [None]
  - HAEMOGLOBIN DECREASED [None]
